FAERS Safety Report 4880595-4 (Version None)
Quarter: 2006Q1

REPORT INFORMATION
  Report Type: 
  Country: None (occurrence: None)
  Receive Date: 20060113
  Receipt Date: 20050829
  Transmission Date: 20060701
  Serious: Yes (Hospitalization)
  Sender: FDA-Public Use
  Company Number: US-MERCK-0508USA04675

PATIENT
  Age: 59 Year
  Sex: Female
  Weight: 106 kg

DRUGS (2)
  1. VIOXX [Suspect]
     Indication: ARTHRITIS
     Route: 048
     Dates: start: 19991001, end: 20020801
  2. VIOXX [Suspect]
     Route: 048
     Dates: start: 19991001, end: 20020801

REACTIONS (4)
  - BONE DISORDER [None]
  - CEREBROVASCULAR ACCIDENT [None]
  - COUGH [None]
  - ROTATOR CUFF SYNDROME [None]
